FAERS Safety Report 13903594 (Version 1)
Quarter: 2017Q3

REPORT INFORMATION
  Report Type: Report from Study
  Country: GB (occurrence: GB)
  Receive Date: 20170824
  Receipt Date: 20170824
  Transmission Date: 20171127
  Serious: Yes (Hospitalization)
  Sender: FDA-Public Use
  Company Number: GB-GILEAD-2017-0289745

PATIENT
  Age: 47 Year
  Sex: Male

DRUGS (1)
  1. AZTREONAM LYSINE [Suspect]
     Active Substance: AZTREONAM LYSINE
     Indication: PRODUCT USED FOR UNKNOWN INDICATION
     Dosage: 75 MG, FREQUENCY UNKNOWN
     Route: 055
     Dates: start: 201306

REACTIONS (1)
  - Antibiotic therapy [Not Recovered/Not Resolved]

NARRATIVE: CASE EVENT DATE: 20170817
